FAERS Safety Report 8239775-2 (Version None)
Quarter: 2012Q1

REPORT INFORMATION
  Report Type: 
  Country: None (occurrence: None)
  Receive Date: 20120328
  Receipt Date: 20120319
  Transmission Date: 20120608
  Serious: Yes (Other)
  Sender: FDA-Public Use
  Company Number: FR-JNJFOC-20120309779

PATIENT
  Age: 33 Year
  Sex: Female

DRUGS (4)
  1. REMICADE [Suspect]
     Indication: ANKYLOSING SPONDYLITIS
     Route: 042
  2. REMICADE [Suspect]
     Indication: CROHN'S DISEASE
     Route: 042
  3. DESLORATADINE [Concomitant]
     Indication: PREMEDICATION
     Route: 065
  4. ANTIHISTAMINES [Concomitant]
     Indication: PREMEDICATION
     Route: 065

REACTIONS (1)
  - TENDONITIS [None]
